FAERS Safety Report 7671213-0 (Version None)
Quarter: 2011Q3

REPORT INFORMATION
  Report Type: 
  Country: None (occurrence: None)
  Receive Date: 20110803
  Receipt Date: 20110720
  Transmission Date: 20111222
  Serious: Yes (Other)
  Sender: FDA-Public Use
  Company Number: 1000022527

PATIENT
  Age: 85 Year
  Sex: Male

DRUGS (1)
  1. FOSFOMYCIN (FOSFOMYCIN TROMETAMOL) (GRANULATE) [Suspect]
     Indication: URINARY TRACT INFECTION
     Dosage: 0.5 DOSAGE FORM (1 DOSAGE FORMS,EVERY OTHER DAY),ORAL
     Route: 048
     Dates: start: 20110718, end: 20110720

REACTIONS (6)
  - OFF LABEL USE [None]
  - DYSURIA [None]
  - DIARRHOEA [None]
  - PAIN [None]
  - ASTHENIA [None]
  - OVERDOSE [None]
